FAERS Safety Report 9649013 (Version 8)
Quarter: 2014Q3

REPORT INFORMATION
  Report Type: Spontaneous
  Country: US (occurrence: None)
  Receive Date: 20131018
  Receipt Date: 20140925
  Transmission Date: 20150326
  Serious: Yes (Other)
  Sender: FDA-Public Use
  Company Number: AEGR000129

PATIENT
  Age: 51 Year
  Sex: Female
  Weight: 80.7 kg

DRUGS (13)
  1. CRESTOR [Concomitant]
     Active Substance: ROSUVASTATIN CALCIUM
  2. KLOR-CON (POTASSIUM CHLORIDE) [Concomitant]
  3. ASPIRIN (ACETYLSALICYLIC ACID) [Concomitant]
     Active Substance: ASPIRIN
  4. ZETIA [Concomitant]
     Active Substance: EZETIMIBE
  5. ALEVE (NAPROXEN SODIUM) [Concomitant]
  6. HYDROCHLOROTHIAZIDE (HYDROCHLOROTHIAZIDE) [Concomitant]
     Active Substance: HYDROCHLOROTHIAZIDE
  7. NIASPAN (NICOTINIC ACID) [Concomitant]
  8. VOLTAREN [Concomitant]
     Active Substance: DICLOFENAC SODIUM
  9. CALTRATE + D (CALCIUM CARBONATE, COLECALCIFEROL) [Concomitant]
  10. JUXTAPID [Suspect]
     Active Substance: LOMITAPIDE MESYLATE
     Indication: TYPE IIA HYPERLIPIDAEMIA
     Route: 048
     Dates: start: 20130423
  11. MULTIVITAMIN (VITAMINS NOS) [Concomitant]
  12. WELCHOL (COLESEVELAM HYDROCHLORIDE) [Concomitant]
  13. GLUCOSAMINE/CHONDROITIN (CHONDROITIN SULFATE, GLUCOSAMINE) [Concomitant]

REACTIONS (5)
  - Abnormal dreams [None]
  - Nausea [None]
  - Alanine aminotransferase increased [None]
  - Aspartate aminotransferase increased [None]
  - Blood alkaline phosphatase increased [None]

NARRATIVE: CASE EVENT DATE: 2013
